FAERS Safety Report 8622163-4 (Version None)
Quarter: 2012Q3

REPORT INFORMATION
  Report Type: 
  Country: None (occurrence: None)
  Receive Date: 20120826
  Receipt Date: 20120628
  Transmission Date: 20120928
  Serious: Yes (Other)
  Sender: FDA-Public Use
  Company Number: GB-VALEANT-2012VX003787

PATIENT
  Age: 49 Year
  Sex: Male

DRUGS (2)
  1. CESAMET [Suspect]
     Route: 065
     Dates: start: 20110101
  2. CESAMET [Suspect]
     Route: 065

REACTIONS (2)
  - BRAIN INJURY [None]
  - MOBILITY DECREASED [None]
